FAERS Safety Report 11445773 (Version 2)
Quarter: 2015Q4

REPORT INFORMATION
  Report Type: Spontaneous
  Country: US (occurrence: None)
  Receive Date: 20150828
  Receipt Date: 20151015
  Transmission Date: 20160304
  Serious: Yes (Hospitalization)
  Sender: FDA-Public Use
  Company Number: 1713747-2015-999271

PATIENT
  Age: 59 Year
  Sex: Male

DRUGS (3)
  1. LIBERTY CASETTE [Concomitant]
  2. DELFLEX [Suspect]
     Active Substance: CALCIUM CHLORIDE\DEXTROSE MONOHYDRATE\MAGNESIUM CHLORIDE\SODIUM CHLORIDE\SODIUM LACTATE
     Indication: PERITONEAL DIALYSIS
     Route: 033
  3. LIBERTY CYCLER [Concomitant]
     Active Substance: DEVICE

REACTIONS (1)
  - Peritonitis [None]

NARRATIVE: CASE EVENT DATE: 20150724
